FAERS Safety Report 5861400-6 (Version None)
Quarter: 2008Q3

REPORT INFORMATION
  Report Type: 
  Country: None (occurrence: None)
  Receive Date: 20080827
  Receipt Date: 20080505
  Transmission Date: 20090109
  Serious: No
  Sender: FDA-Public Use
  Company Number: US-ABBOTT-08P-163-0450301-00

PATIENT
  Age: 77 Year
  Sex: Male

DRUGS (5)
  1. COATED PDS [Suspect]
     Indication: CARDIAC DISORDER
     Route: 048
     Dates: start: 20080501, end: 20080503
  2. LISINOPRIL [Concomitant]
     Indication: CARDIAC DISORDER
     Route: 048
  3. SIMVASTATIN [Concomitant]
     Indication: CARDIAC DISORDER
     Route: 048
  4. CARVEDILOL [Concomitant]
     Indication: CARDIAC DISORDER
     Route: 048
  5. ISOSORBIDE MONONITRATE [Concomitant]
     Indication: CARDIAC DISORDER
     Route: 048

REACTIONS (4)
  - ERYTHEMA [None]
  - HOT FLUSH [None]
  - PARAESTHESIA [None]
  - PRURITUS [None]
